FAERS Safety Report 17915249 (Version 1)
Quarter: 2020Q2

REPORT INFORMATION
  Report Type: Spontaneous
  Country: US (occurrence: US)
  Receive Date: 20200619
  Receipt Date: 20200619
  Transmission Date: 20200714
  Serious: No
  Sender: FDA-Public Use
  Company Number: US-ITALFARMACO SPA-2086103

PATIENT
  Age: 73 Year
  Sex: Male

DRUGS (5)
  1. TIGLUTIK [Suspect]
     Active Substance: RILUZOLE
     Indication: AMYOTROPHIC LATERAL SCLEROSIS
     Dates: start: 20200129, end: 20200420
  2. VITAMIN B12 [Concomitant]
     Active Substance: CYANOCOBALAMIN
  3. HEALTH SENSE ASPIRIN 81 [Concomitant]
     Active Substance: ASPIRIN
  4. CHOLECALCIFEROL [Concomitant]
     Active Substance: CHOLECALCIFEROL
  5. LIVER DETOX ORAL SUPPLEMENT [Concomitant]

REACTIONS (1)
  - Hepatic enzyme increased [Not Recovered/Not Resolved]
